FAERS Safety Report 14526921 (Version 1)
Quarter: 2018Q1

REPORT INFORMATION
  Report Type: Spontaneous
  Country: US (occurrence: US)
  Receive Date: 20180212
  Receipt Date: 20180212
  Transmission Date: 20180509
  Serious: No
  Sender: FDA-Public Use
  Company Number: None

PATIENT
  Age: 49 Year
  Sex: Female
  Weight: 72 kg

DRUGS (8)
  1. ROBINUL [Concomitant]
     Active Substance: GLYCOPYRROLATE
  2. DEXILANT [Suspect]
     Active Substance: DEXLANSOPRAZOLE
     Indication: GASTROOESOPHAGEAL REFLUX DISEASE
     Dosage: ?          QUANTITY:1 CAPSULE(S);?
     Route: 048
     Dates: start: 20180202, end: 20180209
  3. COZAAR [Concomitant]
     Active Substance: LOSARTAN POTASSIUM
  4. IT D [Concomitant]
  5. KRILL OIL [Concomitant]
     Active Substance: DIETARY SUPPLEMENT
  6. MVI [Concomitant]
     Active Substance: VITAMINS
  7. BENADRYL [Concomitant]
     Active Substance: DIPHENHYDRAMINE HYDROCHLORIDE
  8. VALIUM [Concomitant]
     Active Substance: DIAZEPAM

REACTIONS (13)
  - Bone pain [None]
  - Drug ineffective [None]
  - Arthralgia [None]
  - Back pain [None]
  - Therapy cessation [None]
  - Pain in extremity [None]
  - Feeling abnormal [None]
  - Grip strength decreased [None]
  - Myalgia [None]
  - Asthenia [None]
  - Headache [None]
  - Crying [None]
  - Pain [None]

NARRATIVE: CASE EVENT DATE: 20180209
